FAERS Safety Report 6165146-9 (Version None)
Quarter: 2009Q2

REPORT INFORMATION
  Report Type: 
  Country: None (occurrence: None)
  Receive Date: 20090421
  Receipt Date: 20090421
  Transmission Date: 20091009
  Serious: Yes (Other)
  Sender: FDA-Public Use
  Company Number: None

PATIENT
  Age: 31 Year
  Sex: Female
  Weight: 64.8644 kg

DRUGS (1)
  1. CREST PRO HEALTH TOOTHPASTE CREST [Suspect]
     Dosage: TOOTHPASTE USED AS USUALL 3 TIMES PO
     Route: 048
     Dates: start: 20090417, end: 20090417

REACTIONS (8)
  - ABDOMINAL PAIN UPPER [None]
  - DISCOMFORT [None]
  - DRY MOUTH [None]
  - DRY THROAT [None]
  - DYSGEUSIA [None]
  - HYPOAESTHESIA ORAL [None]
  - HYPOPHAGIA [None]
  - PHARYNGEAL HYPOAESTHESIA [None]
